FAERS Safety Report 10502371 (Version 1)
Quarter: 2014Q4

REPORT INFORMATION
  Report Type: Spontaneous
  Country: CH (occurrence: CH)
  Receive Date: 20141007
  Receipt Date: 20141007
  Transmission Date: 20150528
  Serious: Yes (Hospitalization)
  Sender: FDA-Public Use
  Company Number: PHHY2014CH129727

PATIENT
  Sex: Female

DRUGS (2)
  1. GILENYA [Suspect]
     Active Substance: FINGOLIMOD HYDROCHLORIDE
     Dosage: 0.5 MG, UNK
     Dates: start: 201309, end: 20140712
  2. GILENYA [Suspect]
     Active Substance: FINGOLIMOD HYDROCHLORIDE
     Dosage: 0.5 MG, UNK
     Route: 048
     Dates: start: 20140714

REACTIONS (9)
  - Pallor [Recovered/Resolved]
  - Presyncope [Recovered/Resolved]
  - Malaise [Recovered/Resolved]
  - Fall [Recovered/Resolved]
  - Feeling hot [Recovered/Resolved]
  - Heart rate irregular [Recovered/Resolved]
  - Head injury [Recovered/Resolved]
  - Hyperhidrosis [Recovered/Resolved]
  - Hypotension [Recovered/Resolved]

NARRATIVE: CASE EVENT DATE: 20140714
